FAERS Safety Report 13757673 (Version 2)
Quarter: 2017Q3

REPORT INFORMATION
  Report Type: Report from Study
  Country: IT (occurrence: IT)
  Receive Date: 20170717
  Receipt Date: 20170726
  Transmission Date: 20171127
  Serious: Yes (Hospitalization)
  Sender: FDA-Public Use
  Company Number: IT-ACCORD-053564

PATIENT
  Age: 77 Year
  Sex: Female

DRUGS (5)
  1. CARDIOASPIRIN [Concomitant]
     Active Substance: ASPIRIN
     Indication: PRODUCT USED FOR UNKNOWN INDICATION
     Dosage: STRENGTH: 100 MG
  2. SIVASTIN [Concomitant]
     Active Substance: SIMVASTATIN
     Indication: PRODUCT USED FOR UNKNOWN INDICATION
     Dosage: STRENGTH: 10 MG
  3. DUROGESIC [Suspect]
     Active Substance: FENTANYL
     Indication: SPINAL PAIN
     Dosage: STRENGTH: 50 UG
     Route: 062
     Dates: start: 20170316, end: 20170316
  4. RAMIPRIL. [Suspect]
     Active Substance: RAMIPRIL
     Indication: HYPERTENSION
     Route: 048
     Dates: start: 20170316, end: 20170316
  5. LYRICA [Suspect]
     Active Substance: PREGABALIN
     Indication: MYELOPATHY
     Dosage: STRENGTH: 25 MG?RIGID
     Route: 048
     Dates: start: 20170315, end: 20170316

REACTIONS (6)
  - Nausea [Recovered/Resolved]
  - Vomiting [Recovered/Resolved]
  - Hyponatraemia [Recovered/Resolved]
  - Dizziness [Recovered/Resolved]
  - Overdose [Unknown]
  - Malaise [Recovered/Resolved]

NARRATIVE: CASE EVENT DATE: 20170316
